FAERS Safety Report 15257983 (Version 2)
Quarter: 2018Q3

REPORT INFORMATION
  Report Type: Spontaneous
  Country: CN (occurrence: CN)
  Receive Date: 20180808
  Receipt Date: 20180809
  Transmission Date: 20181010
  Serious: Yes (Hospitalization, Disabling)
  Sender: FDA-Public Use
  Company Number: CN-BAXTER-2018BAX020877

PATIENT
  Age: 65 Year
  Sex: Female
  Weight: 52 kg

DRUGS (4)
  1. 5% GLUCOSE  INJECTION [Suspect]
     Active Substance: DEXTROSE
     Indication: MEDICATION DILUTION
     Dosage: SOLVENT FOR CARBOPLATIN
     Route: 041
     Dates: start: 20180511, end: 20180511
  2. PACLITAXEL. [Suspect]
     Active Substance: PACLITAXEL
     Indication: SQUAMOUS CELL CARCINOMA OF THE CERVIX
     Dosage: 3RD CYCLE OF PACLITAXEL
     Route: 041
     Dates: start: 20180511, end: 20180511
  3. 0.9% SODIUM CHLORIDE INJECTION [Suspect]
     Active Substance: SODIUM CHLORIDE
     Indication: MEDICATION DILUTION
     Dosage: SOLVENT FOR PACLITAXEL
     Route: 041
     Dates: start: 20180511, end: 20180511
  4. PARAPLATIN [Suspect]
     Active Substance: CARBOPLATIN
     Indication: SQUAMOUS CELL CARCINOMA OF THE CERVIX
     Dosage: 3RD CYCLE OF PARAPLATIN
     Route: 041
     Dates: start: 20180511, end: 20180511

REACTIONS (6)
  - White blood cell count decreased [Recovered/Resolved]
  - Pathogen resistance [Recovering/Resolving]
  - Febrile neutropenia [Recovering/Resolving]
  - Escherichia bacteraemia [Recovering/Resolving]
  - Chills [Recovering/Resolving]
  - Emphysematous cystitis [Recovering/Resolving]

NARRATIVE: CASE EVENT DATE: 20180519
